FAERS Safety Report 10556614 (Version 2)
Quarter: 2014Q4

REPORT INFORMATION
  Report Type: Spontaneous
  Country: US (occurrence: US)
  Receive Date: 20141031
  Receipt Date: 20141118
  Transmission Date: 20150529
  Serious: Yes (Disabling, Other)
  Sender: FDA-Public Use
  Company Number: PHEH2014US021430

PATIENT
  Age: 47 Year
  Sex: Female
  Weight: 81.63 kg

DRUGS (2)
  1. GILENYA [Suspect]
     Active Substance: FINGOLIMOD HYDROCHLORIDE
     Indication: MULTIPLE SCLEROSIS
     Dosage: 0.5 MG, QD
     Route: 048
     Dates: start: 20140915, end: 20141022
  2. LATUDA [Concomitant]
     Active Substance: LURASIDONE HYDROCHLORIDE
     Indication: PSYCHOTIC DISORDER
     Dosage: 80 MG, QD
     Route: 048

REACTIONS (12)
  - Blood 25-hydroxycholecalciferol decreased [Unknown]
  - Central nervous system lesion [Unknown]
  - Balance disorder [Recovering/Resolving]
  - Blood urea nitrogen/creatinine ratio decreased [Unknown]
  - Lymphocyte count decreased [Unknown]
  - Coordination abnormal [Unknown]
  - Multiple sclerosis relapse [Recovering/Resolving]
  - VIIth nerve paralysis [Unknown]
  - Hyporeflexia [Unknown]
  - Dysarthria [Recovering/Resolving]
  - Natural killer cell count increased [Unknown]
  - Nasopharyngitis [Unknown]

NARRATIVE: CASE EVENT DATE: 20140927
